FAERS Safety Report 25104876 (Version 1)
Quarter: 2025Q1

REPORT INFORMATION
  Report Type: Spontaneous
  Country: US (occurrence: None)
  Receive Date: 20250321
  Receipt Date: 20250321
  Transmission Date: 20250409
  Serious: Yes (Hospitalization)
  Sender: FDA-CTU
  Company Number: None

PATIENT
  Age: 9 Year
  Sex: Female
  Weight: 24.94 kg

DRUGS (4)
  1. CARBOPLATIN [Suspect]
     Active Substance: CARBOPLATIN
  2. CYCLOPHOSPHAMIDE [Suspect]
     Active Substance: CYCLOPHOSPHAMIDE
  3. ETOPOSIDE [Suspect]
     Active Substance: ETOPOSIDE
  4. PEGFILGRASTIM [Suspect]
     Active Substance: PEGFILGRASTIM

REACTIONS (10)
  - Haematochezia [None]
  - Haematemesis [None]
  - Tachycardia [None]
  - Hypotension [None]
  - Feeling abnormal [None]
  - Lactic acidosis [None]
  - Neutropenic colitis [None]
  - Ascites [None]
  - Pleural effusion [None]
  - Sepsis [None]

NARRATIVE: CASE EVENT DATE: 20250301
